FAERS Safety Report 5023472-0 (Version None)
Quarter: 2006Q2

REPORT INFORMATION
  Report Type: 
  Country: None (occurrence: None)
  Receive Date: 20060612
  Receipt Date: 20060505
  Transmission Date: 20061013
  Serious: Yes (Hospitalization, Other)
  Sender: FDA-Public Use
  Company Number: PHEH2006US05936

PATIENT
  Age: 88 Year
  Sex: Male

DRUGS (12)
  1. METFORMIN [Concomitant]
  2. GLYBURIDE [Concomitant]
     Indication: DIABETES MELLITUS
     Dosage: 2.5 MG, DAILY
  3. LEVOTHYROXINE SODIUM [Concomitant]
     Indication: THYROIDECTOMY
     Dosage: 100 UG, QD
     Dates: start: 20020101
  4. CASODEX [Concomitant]
     Indication: PROSTATE CANCER
     Dosage: 50 MG, DAILY
     Dates: start: 20031001
  5. DOXAZOSIN [Concomitant]
     Indication: BENIGN PROSTATIC HYPERPLASIA
     Dosage: 2 MG, HS
     Dates: start: 20010101
  6. XELODA [Concomitant]
  7. ZOMETA [Suspect]
     Indication: BONE DISORDER
     Dosage: 4 MG EVERY 3 MONTHS
     Dates: start: 20050608, end: 20050608
  8. ZOMETA [Suspect]
     Dosage: 4 MG EVERY 3 MONTHS
     Dates: start: 20050912, end: 20050912
  9. ZOMETA [Suspect]
     Dosage: 4 MG EVERY 3 MONTHS
     Dates: start: 20051212, end: 20051212
  10. ZOLADEX [Concomitant]
     Indication: PROSTATE CANCER
     Dosage: 10.8 MG, EVERY 3 MONTHS
     Dates: start: 20030601
  11. TAMSULOSIN HYDROCHLORIDE [Concomitant]
     Dosage: 0.4 MG, DAILY
     Dates: start: 20060401
  12. PROCARDIA XL [Concomitant]
     Indication: HYPERTENSION
     Dosage: 60 MG,DAILY
     Dates: start: 20060401

REACTIONS (18)
  - ANAEMIA [None]
  - BLOOD CALCIUM DECREASED [None]
  - BLOOD CREATININE INCREASED [None]
  - BLOOD POTASSIUM DECREASED [None]
  - BLOOD POTASSIUM INCREASED [None]
  - BLOOD UREA INCREASED [None]
  - DECREASED APPETITE [None]
  - DIALYSIS [None]
  - GLOMERULAR FILTRATION RATE DECREASED [None]
  - GLOMERULOSCLEROSIS [None]
  - HAEMATURIA [None]
  - HAEMOGLOBIN DECREASED [None]
  - MALAISE [None]
  - NEPHROPATHY [None]
  - NEPHROSCLEROSIS [None]
  - PROTEIN URINE PRESENT [None]
  - RENAL FAILURE [None]
  - WEIGHT DECREASED [None]
